FAERS Safety Report 6911734-9 (Version None)
Quarter: 2010Q3

REPORT INFORMATION
  Report Type: 
  Country: None (occurrence: None)
  Receive Date: 20100806
  Receipt Date: 20100715
  Transmission Date: 20110219
  Serious: No
  Sender: FDA-Public Use
  Company Number: US-BAYER-201028131NA

PATIENT
  Age: 70 Year
  Sex: Male
  Weight: 80 kg

DRUGS (2)
  1. ULTRAVIST 150 [Suspect]
     Indication: COMPUTERISED TOMOGRAM ABDOMEN
     Dosage: TOTAL DAILY DOSE: 119 ML  UNIT DOSE: 120 ML
     Route: 042
     Dates: start: 20100715, end: 20100715
  2. BARIUM CONTRAST [Concomitant]
     Route: 048

REACTIONS (2)
  - PRURITUS [None]
  - URTICARIA [None]
